FAERS Safety Report 6066722-4 (Version None)
Quarter: 2009Q1

REPORT INFORMATION
  Report Type: 
  Country: None (occurrence: None)
  Receive Date: 20090205
  Receipt Date: 20080514
  Transmission Date: 20090719
  Serious: No
  Sender: FDA-Public Use
  Company Number: US-ABBOTT-08P-163-0452634-00

PATIENT
  Sex: Male
  Weight: 87.168 kg

DRUGS (1)
  1. VICODIN [Suspect]
     Indication: ENDODONTIC PROCEDURE
     Route: 048
     Dates: start: 20000101

REACTIONS (2)
  - HYPERSENSITIVITY [None]
  - PSYCHOMOTOR HYPERACTIVITY [None]
